FAERS Safety Report 15732111 (Version 1)
Quarter: 2018Q4

REPORT INFORMATION
  Report Type: Spontaneous
  Country: FR (occurrence: FR)
  Receive Date: 20181217
  Receipt Date: 20181217
  Transmission Date: 20190205
  Serious: Yes (Hospitalization, Other)
  Sender: FDA-Public Use
  Company Number: FR-ALLERGAN-1848724US

PATIENT
  Sex: Male
  Weight: 68 kg

DRUGS (2)
  1. SILODYX [Concomitant]
     Active Substance: SILODOSIN
     Indication: PROSTATITIS
     Dosage: 1 DF, QD
  2. OZURDEX [Suspect]
     Active Substance: DEXAMETHASONE
     Indication: CYSTOID MACULAR OEDEMA
     Dosage: 0.7 MG, SINGLE
     Route: 031
     Dates: start: 20180911, end: 20180911

REACTIONS (4)
  - Ocular hypertension [Recovered/Resolved]
  - Atrioventricular block second degree [Recovered/Resolved]
  - Non-infectious endophthalmitis [Recovered/Resolved]
  - Off label use [Unknown]

NARRATIVE: CASE EVENT DATE: 20180911
